FAERS Safety Report 8632193 (Version 3)
Quarter: 2012Q4

REPORT INFORMATION
  Report Type: 
  Country: US (occurrence: US)
  Receive Date: 20120625
  Receipt Date: 20120829
  Transmission Date: 20130627
  Serious: Yes (Hospitalization, Other)
  Sender: FDA-Public Use
  Company Number: US-ASTELLAS-2012US005502

PATIENT
  Age: 64 None
  Sex: Male

DRUGS (26)
  1. TARCEVA [Suspect]
     Indication: LUNG NEOPLASM MALIGNANT
     Dosage: 150 mg, UID/QD
     Route: 048
     Dates: start: 20120408, end: 20120424
  2. TARCEVA [Suspect]
     Dosage: 100 mg, UID/QD
     Route: 048
     Dates: start: 20120601, end: 20120608
  3. TARCEVA [Suspect]
     Dosage: 100 mg, qod
     Route: 048
     Dates: start: 20120620
  4. CARVEDILOL [Concomitant]
     Indication: CARDIAC FAILURE CONGESTIVE
     Dosage: 3.125 mg, bid
     Route: 065
  5. SPIRONOLACTONE [Concomitant]
     Indication: BLOOD PRESSURE
     Dosage: 12.5 mg, UID/QD
     Route: 065
  6. SPIRONOLACTONE [Concomitant]
     Indication: CARDIAC DISORDER
  7. PRAVASTATIN [Concomitant]
     Indication: BLOOD CHOLESTEROL INCREASED
     Dosage: 80 mg, QHS
     Route: 065
  8. LISINOPRIL [Concomitant]
     Indication: HYPERTENSION
     Dosage: 2.5 mg, UID/QD
     Route: 065
  9. PAROXETINE [Concomitant]
     Indication: MOOD ALTERED
     Dosage: 10 mg, UID/QD
     Route: 065
  10. AMIODARONE [Concomitant]
     Indication: HEART RATE
     Dosage: 200 mg, Q12 hours
     Route: 065
  11. ECOTRIN [Concomitant]
     Indication: CARDIAC DISORDER
     Dosage: 81 mg, UID/QD
     Route: 065
  12. FISH OIL [Concomitant]
     Indication: PRODUCT USED FOR UNKNOWN INDICATION
     Dosage: 1000 mg, UID/QD
     Route: 065
  13. ALBUTEROL                          /00139501/ [Concomitant]
     Indication: PRODUCT USED FOR UNKNOWN INDICATION
     Dosage: 180 ug, qid, prn
     Route: 048
  14. NITROQUICK [Concomitant]
     Indication: PRODUCT USED FOR UNKNOWN INDICATION
     Dosage: 0.4 mg, Unknown/D
     Route: 065
  15. ONDANSETRON [Concomitant]
     Indication: NAUSEA
     Dosage: 8 mg, prn, q6 hrs
     Route: 065
  16. ONDANSETRON [Concomitant]
     Indication: VOMITING
  17. PROMETHAZINE HYDROCHLORIDE [Concomitant]
     Indication: PRODUCT USED FOR UNKNOWN INDICATION
     Dosage: 25 mg, prn, q 4hrs
     Route: 065
  18. DICYCLOMINE                        /00068601/ [Concomitant]
     Indication: ABDOMINAL PAIN
     Dosage: 10 mg, tid
     Route: 065
  19. DICYCLOMINE                        /00068601/ [Concomitant]
     Indication: ABDOMINAL RIGIDITY
  20. BENZONATATE [Concomitant]
     Indication: COUGH
     Dosage: 100 mg, bid, prn
     Route: 065
  21. MAGIC MOUTHWASH [Concomitant]
     Indication: PRODUCT USED FOR UNKNOWN INDICATION
     Dosage: 15 ml, prn, before meals and at bed
     Route: 065
  22. HYDROCODONE HYDROCHLORIDE W/PARACETAMOL [Concomitant]
     Indication: PAIN
     Dosage: UNK, 1-2 tablets q6hrs prn
     Route: 065
  23. SORBITOL [Concomitant]
     Indication: CONSTIPATION
     Dosage: 30 ml, Q6 hours, prn
     Route: 065
  24. FUROSEMIDE [Concomitant]
     Indication: FLUID RETENTION
     Dosage: 20 mg, UID/QD, prn
     Route: 065
  25. POTASSIUM [Concomitant]
     Indication: MINERAL SUPPLEMENTATION
     Dosage: 20 mEq, bid
     Route: 065
  26. DIPHENOXYLATE HCL AND ATROPINE SULFATE [Concomitant]
     Indication: DIARRHOEA
     Dosage: UNK, 2.5-.025, now then later each BM
     Route: 065

REACTIONS (6)
  - Pneumonia [Recovered/Resolved]
  - Diarrhoea [Not Recovered/Not Resolved]
  - Dyspnoea [Not Recovered/Not Resolved]
  - Fatigue [Not Recovered/Not Resolved]
  - Chronic obstructive pulmonary disease [Recovered/Resolved]
  - Non-cardiac chest pain [Unknown]
